FAERS Safety Report 12743421 (Version 1)
Quarter: 2016Q3

REPORT INFORMATION
  Report Type: Spontaneous
  Country: US (occurrence: US)
  Receive Date: 20160914
  Receipt Date: 20160914
  Transmission Date: 20161109
  Serious: No
  Sender: FDA-Public Use
  Company Number: US-BAYER-2016-178278

PATIENT
  Age: 36 Year
  Sex: Female

DRUGS (1)
  1. CLIMARA [Suspect]
     Active Substance: ESTRADIOL
     Dosage: DAILY DOSE .1 MG
     Route: 062
     Dates: start: 20160307

REACTIONS (1)
  - Rash [Not Recovered/Not Resolved]
